FAERS Safety Report 5826766-1 (Version None)
Quarter: 2008Q3

REPORT INFORMATION
  Report Type: 
  Country: None (occurrence: None)
  Receive Date: 20080728
  Receipt Date: 20080728
  Transmission Date: 20090109
  Serious: Yes (Other)
  Sender: FDA-Public Use
  Company Number: None

PATIENT
  Age: 52 Year
  Sex: Female
  Weight: 71.6683 kg

DRUGS (2)
  1. ADVAIR DISKUS 100/50 [Suspect]
     Dosage: 1 DOSE A DAY
  2. ADVAIR DISKUS 250/50 [Suspect]
     Dosage: 1 DOZE A DAY

REACTIONS (7)
  - DRUG EFFECT DECREASED [None]
  - DYSGRAPHIA [None]
  - DYSPNOEA [None]
  - IMPAIRED WORK ABILITY [None]
  - MALAISE [None]
  - PALPITATIONS [None]
  - TREMOR [None]
